FAERS Safety Report 12900724 (Version 1)
Quarter: 2016Q4

REPORT INFORMATION
  Report Type: Spontaneous
  Country: US (occurrence: US)
  Receive Date: 20161101
  Receipt Date: 20161101
  Transmission Date: 20170207
  Serious: No
  Sender: FDA-Public Use
  Company Number: PHHY2016US150172

PATIENT
  Sex: Female

DRUGS (2)
  1. WARFARIN SODIUM TABLETS USP [Suspect]
     Active Substance: WARFARIN SODIUM
     Indication: THROMBOSIS
     Dosage: UNK
     Route: 065
  2. VOLTAREN [Suspect]
     Active Substance: DICLOFENAC SODIUM
     Indication: PAIN
     Dosage: UNK
     Route: 065

REACTIONS (2)
  - Intercepted medication error [Unknown]
  - Off label use [Unknown]
